FAERS Safety Report 6753491-5 (Version None)
Quarter: 2010Q2

REPORT INFORMATION
  Report Type: 
  Country: None (occurrence: None)
  Receive Date: 20100603
  Receipt Date: 20100601
  Transmission Date: 20101027
  Serious: Yes (Life-Threatening)
  Sender: FDA-Public Use
  Company Number: US-SANOFI-AVENTIS-2010SA031464

PATIENT
  Age: 52 Year
  Sex: Male

DRUGS (14)
  1. DOCETAXEL [Suspect]
     Indication: PROSTATE CANCER
     Route: 041
     Dates: start: 20100204, end: 20100204
  2. DOCETAXEL [Suspect]
     Route: 041
     Dates: start: 20100318, end: 20100318
  3. DOCETAXEL [Suspect]
     Route: 041
     Dates: start: 20100408, end: 20100408
  4. DOCETAXEL [Suspect]
     Route: 041
     Dates: start: 20100513, end: 20100513
  5. LUPRON [Suspect]
     Indication: PROSTATE CANCER
     Route: 030
     Dates: start: 20100204, end: 20100506
  6. CASODEX [Suspect]
     Indication: PROSTATE CANCER
     Route: 048
     Dates: start: 20100201
  7. DEXAMETHASONE [Concomitant]
  8. GLIPIZIDE [Concomitant]
  9. TAMSULOSIN HCL [Concomitant]
  10. ASPIRIN [Concomitant]
  11. METFORMIN [Concomitant]
  12. PIOGLITAZONE [Concomitant]
  13. BACTRIM [Concomitant]
  14. CEPHALEXIN [Concomitant]

REACTIONS (1)
  - BLOOD GLUCOSE INCREASED [None]
